FAERS Safety Report 8112122-2 (Version None)
Quarter: 2012Q1

REPORT INFORMATION
  Report Type: 
  Country: None (occurrence: None)
  Receive Date: 20120203
  Receipt Date: 20120126
  Transmission Date: 20120608
  Serious: Yes (Death, Life-Threatening)
  Sender: FDA-Public Use
  Company Number: JP-PFIZER INC-2011128903

PATIENT
  Age: 95 Year
  Sex: Female

DRUGS (9)
  1. ZOSYN [Suspect]
     Indication: PNEUMONIA
     Dosage: 4.5 G, 3X/DAY
     Route: 042
     Dates: start: 20110604, end: 20110606
  2. CEFOPERAZONE SODIUM [Suspect]
     Indication: PNEUMONIA
     Dosage: 2 G/DAY
     Route: 042
     Dates: start: 20110603, end: 20110604
  3. LASIX [Concomitant]
     Indication: CARDIAC FAILURE CONGESTIVE
     Dosage: UNK
     Route: 042
     Dates: start: 20110603, end: 20110612
  4. DEPAKENE [Concomitant]
     Indication: EPILEPSY
     Dosage: UNK
     Route: 048
     Dates: end: 20110612
  5. OMEPRAZOLE [Concomitant]
     Indication: UPPER GASTROINTESTINAL HAEMORRHAGE
     Dosage: UNK
     Route: 042
     Dates: start: 20110604, end: 20110607
  6. MAGNESIUM HYDROXIDE TAB [Concomitant]
     Indication: UPPER GASTROINTESTINAL HAEMORRHAGE
     Dosage: UNK
     Route: 048
     Dates: start: 20110604, end: 20110611
  7. SOLDACTONE [Concomitant]
     Indication: CARDIAC FAILURE CONGESTIVE
     Dosage: UNK
     Route: 042
     Dates: start: 20110603, end: 20110606
  8. DECADRON [Concomitant]
     Indication: ASTHMA
     Dosage: UNK
     Route: 042
     Dates: start: 20110603, end: 20110610
  9. ADONA [Concomitant]
     Indication: UPPER GASTROINTESTINAL HAEMORRHAGE
     Dosage: UNK
     Dates: start: 20110604, end: 20110612

REACTIONS (1)
  - HEPATIC FUNCTION ABNORMAL [None]
